FAERS Safety Report 5399874-X (Version None)
Quarter: 2007Q3

REPORT INFORMATION
  Report Type: 
  Country: None (occurrence: None)
  Receive Date: 20070730
  Receipt Date: 20070727
  Transmission Date: 20080115
  Serious: Yes (Death, Hospitalization)
  Sender: FDA-Public Use
  Company Number: PHBS2007PH12518

PATIENT
  Age: 70 Year
  Sex: Male

DRUGS (2)
  1. DOXYCYCLINE [Suspect]
  2. DIOVAN HCT [Suspect]
     Indication: HYPERTENSION
     Dosage: VALS 80 / HCT 12.5 MG/DAY
     Route: 048

REACTIONS (1)
  - CHRONIC OBSTRUCTIVE PULMONARY DISEASE [None]
